FAERS Safety Report 13670386 (Version 2)
Quarter: 2017Q2

REPORT INFORMATION
  Report Type: Spontaneous
  Country: IT (occurrence: IT)
  Receive Date: 20170620
  Receipt Date: 20170630
  Transmission Date: 20170830
  Serious: Yes (Other)
  Sender: FDA-Public Use
  Company Number: IT-PURDUE PHARMA-GBR-2017-0046047

PATIENT
  Age: 52 Year
  Sex: Male

DRUGS (1)
  1. TARGIN [Suspect]
     Active Substance: NALOXONE HYDROCHLORIDE\OXYCODONE HYDROCHLORIDE
     Indication: ARTHRALGIA
     Dosage: 1 UNIT, SINGLE
     Route: 048
     Dates: start: 20170408, end: 20170408

REACTIONS (4)
  - Dry mouth [Recovering/Resolving]
  - Mechanical urticaria [Recovering/Resolving]
  - Pruritus [Recovering/Resolving]
  - Vertigo [Recovering/Resolving]

NARRATIVE: CASE EVENT DATE: 20170408
